FAERS Safety Report 4746797-2 (Version None)
Quarter: 2005Q3

REPORT INFORMATION
  Report Type: 
  Country: None (occurrence: None)
  Receive Date: 20050817
  Receipt Date: 20050810
  Transmission Date: 20060218
  Serious: Yes (Hospitalization)
  Sender: FDA-Public Use
  Company Number: GB-MERCK-0508GBR00071

PATIENT
  Sex: Male
  Weight: 70 kg

DRUGS (5)
  1. ZOCOR [Suspect]
     Indication: BLOOD CHOLESTEROL INCREASED
     Route: 048
     Dates: start: 20050602, end: 20050711
  2. CYCLOSPORINE [Concomitant]
     Route: 065
  3. PREDNISOLONE [Concomitant]
     Route: 065
  4. ASPIRIN [Concomitant]
     Route: 065
  5. AZATHIOPRINE [Concomitant]
     Route: 065

REACTIONS (5)
  - ASTHENIA [None]
  - CHROMATURIA [None]
  - MALAISE [None]
  - RENAL FAILURE ACUTE [None]
  - RHABDOMYOLYSIS [None]
